FAERS Safety Report 21982124 (Version 2)
Quarter: 2023Q2

REPORT INFORMATION
  Report Type: Report from Study
  Country: JP (occurrence: JP)
  Receive Date: 20230213
  Receipt Date: 20230502
  Transmission Date: 20230722
  Serious: Yes (Other)
  Sender: FDA-Public Use
  Company Number: JP-SUN PHARMACEUTICAL INDUSTRIES LTD-2023R1-377434

PATIENT

DRUGS (3)
  1. CARBOPLATIN [Suspect]
     Active Substance: CARBOPLATIN
     Indication: Chemotherapy
     Dosage: UNK, FOUR CYCLES AREA UNDER THE CURVE OF 4-5 MIN MG/ML, ON DAY 1 OF EACH CYCLE
     Route: 042
  2. ATEZOLIZUMAB [Suspect]
     Active Substance: ATEZOLIZUMAB
     Indication: Chemotherapy
     Dosage: UNK, FOUR CYCLES FIXED DOSE OF 1200 MG ON DAY 1 OF EACH CYCLE
     Route: 042
  3. ETOPOSIDE [Suspect]
     Active Substance: ETOPOSIDE
     Indication: Chemotherapy
     Dosage: UNK, FOUR CYCLES 80-100 MG/M2 BODY SURFACE AREA, INTRAVENOUS INJECTION ON DAYS 1 THROUGH 3 OF EACH C
     Route: 042

REACTIONS (1)
  - Therapy partial responder [Unknown]
